FAERS Safety Report 5289188-0 (Version None)
Quarter: 2007Q1

REPORT INFORMATION
  Report Type: 
  Country: None (occurrence: None)
  Receive Date: 20070118
  Receipt Date: 20061220
  Transmission Date: 20070707
  Serious: Yes (Other)
  Sender: FDA-Public Use
  Company Number: HQWYE916222DEC06

PATIENT
  Age: 78 Year
  Sex: Male
  Weight: 83.99 kg

DRUGS (7)
  1. ADVIL PM [Suspect]
     Indication: INSOMNIA
     Dosage: 1 CAPLET AT BEDTIME
     Dates: start: 20061201, end: 20061218
  2. LIPITOR [Concomitant]
  3. HCT (HYDROCHLOROTHIAZIDE) [Concomitant]
  4. PLAVIX [Concomitant]
  5. MONOPRIL [Concomitant]
  6. DIGOXIN [Concomitant]
  7. PERGOLIDE MESYLATE [Concomitant]

REACTIONS (1)
  - DYSPNOEA [None]
